FAERS Safety Report 24961779 (Version 3)
Quarter: 2025Q3

REPORT INFORMATION
  Report Type: Spontaneous
  Country: JP (occurrence: JP)
  Receive Date: 20250212
  Receipt Date: 20250725
  Transmission Date: 20251021
  Serious: Yes (Hospitalization)
  Sender: EISAI
  Company Number: JP-Eisai-202414837_LEN-EC_P_1

PATIENT
  Age: 61 Year
  Sex: Female
  Weight: 50 kg

DRUGS (5)
  1. LENVIMA [Suspect]
     Active Substance: LENVATINIB
     Indication: Endometrial cancer
     Dates: start: 202412
  2. LENVIMA [Suspect]
     Active Substance: LENVATINIB
  3. LENVIMA [Suspect]
     Active Substance: LENVATINIB
  4. LENVIMA [Suspect]
     Active Substance: LENVATINIB
  5. KEYTRUDA [Concomitant]
     Active Substance: PEMBROLIZUMAB
     Indication: Endometrial cancer
     Dates: start: 202412

REACTIONS (3)
  - Herpes zoster [Recovered/Resolved]
  - Hypertension [Recovered/Resolved]
  - Platelet count decreased [Recovered/Resolved]
